FAERS Safety Report 23980352 (Version 4)
Quarter: 2024Q3

REPORT INFORMATION
  Report Type: Report from Study
  Country: PT (occurrence: PT)
  Receive Date: 20240617
  Receipt Date: 20240723
  Transmission Date: 20241017
  Serious: Yes (Other)
  Sender: ABBVIE
  Company Number: PT-ABBVIE-5802730

PATIENT
  Age: 80 Year
  Sex: Male

DRUGS (17)
  1. CARBIDOPA\LEVODOPA [Suspect]
     Active Substance: CARBIDOPA\LEVODOPA
     Indication: Parkinson^s disease
     Dosage: 20 MG + 5 MG, MORN:7.3CC;MAIN:4.3CC/H;EXTRA:1CC
     Route: 050
     Dates: start: 20230621
  2. CARBIDOPA\LEVODOPA [Suspect]
     Active Substance: CARBIDOPA\LEVODOPA
     Dosage: 20 MG + 5 MG, MORN:16.5CC;MAIN:6.1CC/H;EXTRA:7.7CC
     Route: 050
     Dates: start: 20240605
  3. CARBIDOPA\LEVODOPA [Suspect]
     Active Substance: CARBIDOPA\LEVODOPA
     Dosage: 20 MG + 5 MG, MORN:16.5CC;MAIN:6.1CC/H;EXTRA:7.7CC?LAST ADMIN DATE: 05 JUN 2024
     Route: 050
     Dates: start: 202406
  4. DUTASTERIDE\TAMSULOSIN [Concomitant]
     Active Substance: DUTASTERIDE\TAMSULOSIN
     Indication: Product used for unknown indication
     Dosage: 5 MG + 4 MG, ?FREQUENCY TEXT: 1 TABLET AT LUNCH?START DATE TEXT: BEFORE DUODOPA
  5. AMANTADINE HYDROCHLORIDE [Concomitant]
     Active Substance: AMANTADINE HYDROCHLORIDE
     Indication: Product used for unknown indication
     Dosage: 1 TABLET, FORM STRENGTH: 100 MILLIGRAM, ?FREQUENCY TEXT: AT BREAKFAST?START DATE: BEFORE DUODOPA,
  6. FLUOXETINE [Concomitant]
     Active Substance: FLUOXETINE HYDROCHLORIDE
     Indication: Product used for unknown indication
     Dosage: FORM STRENGTH: 20 MILLIGRAM?FREQUENCY TEXT:  AT BREAKFAST,?START DATE: BEFORE DUODOPA
  7. RAMIPRIL [Concomitant]
     Active Substance: RAMIPRIL
     Indication: Product used for unknown indication
     Dosage: 1 TABLET, FORM STRENGTH: 5 MILLIGRAM, ?FREQUENCY TEXT: AT BREAKFAST ?START DATE: BEFORE DUODOPA
  8. RIVOTRIL [Concomitant]
     Active Substance: CLONAZEPAM
     Indication: Product used for unknown indication
     Dosage: 1 TABLET, FORM STRENGTH: 0.5 MILLIGRAM ?FREQUECT TEXT: AT BED TIME ?START DATE: BEFORE DUODOPA
  9. NEUROBION [Concomitant]
     Active Substance: CYANOCOBALAMIN\PYRIDOXINE\THIAMINE
     Indication: Product used for unknown indication
     Dosage: 1 TABLET, ?START DATE: BEFORE DUODOPA
  10. FOLIC ACID [Concomitant]
     Active Substance: FOLIC ACID
     Indication: Product used for unknown indication
     Dosage: FORM STRENGTH: 5 MILLIGRAM,?FREQUENCY TEXT: 1 TABLET AT LUNCH ON SATURDAYS AND SUNDAYS,?START DAT...
  11. EDOXABAN TOSYLATE [Concomitant]
     Active Substance: EDOXABAN TOSYLATE
     Indication: Product used for unknown indication
     Dosage: 1 TABLET, FORM STRENGTH: 60 MILLIGRAM,?START DATE: BEFORE DUODOPA
  12. SINEMET CR [Concomitant]
     Active Substance: CARBIDOPA\LEVODOPA
     Indication: Product used for unknown indication
     Dosage: FREQUENCY TEXT:1 TABLET, AT BEDTIME, ?START DATE: BEFORE DUODOPA
  13. SIMVASTATIN [Concomitant]
     Active Substance: SIMVASTATIN
     Indication: Product used for unknown indication
     Dosage: 1 TABLET, FORM STRENGTH: 20 MILLIGRAM, ?FREQENCY TEXT: AT BED TIME,?START DATE: BEFORE DUODOPA
  14. RIVASTIGMINE [Concomitant]
     Active Substance: RIVASTIGMINE
     Indication: Product used for unknown indication
     Dosage: 13,3 MG/24H, ?FREQUENCY TEXT: 1 PATCH DAILY,?START DATE: BEFORE DUODOPA TD
     Route: 062
  15. PANTOPRAZOLE [Concomitant]
     Active Substance: PANTOPRAZOLE
     Indication: Product used for unknown indication
     Dosage: 1 TABLET, FORM STRENGTH: 20 MILLIGRAM, ?FREQUENCY TEXT:  AT FASTING,?START DATE: BEFORE DUODOPA
  16. MIRABEGRON [Concomitant]
     Active Substance: MIRABEGRON
     Indication: Product used for unknown indication
     Dosage: 1 CAPSULE?FORM STRENGTH: 25 MILLIGRAM?FREQUENCY TEXT: AT BREAKFAST?START DATE TEXT: BEFORE DUODOPA
  17. MEMANTINE [Concomitant]
     Active Substance: MEMANTINE
     Indication: Product used for unknown indication
     Dosage: 2 TABLET, FORM STRENGTH: 10MILLIGRAM,?FREQUENCY TEXT: AT BREAKFAST AND AT DINNER,?START DATE: BEF...

REACTIONS (1)
  - Urinary tract infection [Recovered/Resolved]

NARRATIVE: CASE EVENT DATE: 20240612
